FAERS Safety Report 4954303-2 (Version None)
Quarter: 2006Q1

REPORT INFORMATION
  Report Type: 
  Country: None (occurrence: None)
  Receive Date: 20060322
  Receipt Date: 20060303
  Transmission Date: 20060701
  Serious: Yes (Other)
  Sender: FDA-Public Use
  Company Number: GB200602002637

PATIENT
  Age: 71 Year
  Sex: Male

DRUGS (11)
  1. HUMALOG [Suspect]
     Indication: DIABETES MELLITUS
     Dosage: SEE IMAGE
     Dates: start: 20050801
  2. LANTUS [Concomitant]
  3. METFORMIN HCL [Concomitant]
  4. METOPROLOL TARTRATE [Concomitant]
  5. SPIRONOLACTONE (SPIRONOLACTONE) TABLET [Concomitant]
  6. AMIAS (CANDESARTAN CILEXETIL) TABLET [Concomitant]
  7. SIMVASTATIN [Concomitant]
  8. OMEPRAZOLE [Concomitant]
  9. CALCICHEW-D3 (CALCIUM CARBONATE, COLECALCIFEROL) CHEWABLE TABLET [Concomitant]
  10. FUROSEMIDE [Concomitant]
  11. ALENDRONIC ACID (ALENDRONIC ACID) TABLET [Concomitant]

REACTIONS (5)
  - BLOOD GLUCOSE DECREASED [None]
  - LOSS OF CONSCIOUSNESS [None]
  - RESTLESSNESS [None]
  - SPEECH DISORDER [None]
  - SWOLLEN TONGUE [None]
